FAERS Safety Report 4425784-8 (Version None)
Quarter: 2004Q3

REPORT INFORMATION
  Report Type: 
  Country: None (occurrence: None)
  Receive Date: 20040810
  Receipt Date: 20040728
  Transmission Date: 20050211
  Serious: Yes (Hospitalization)
  Sender: FDA-Public Use
  Company Number: 2004EU001468

PATIENT
  Age: 46 Year
  Sex: Male

DRUGS (3)
  1. PROGRAF [Suspect]
     Indication: RENAL TRANSPLANT
  2. CYCLOSPORINE [Concomitant]
  3. PREDNISOLONE [Concomitant]

REACTIONS (7)
  - ASTHENIA [None]
  - EYE ABSCESS [None]
  - EYE PAIN [None]
  - EYE REDNESS [None]
  - GROIN PAIN [None]
  - INGUINAL MASS [None]
  - NOCARDIOSIS [None]
